FAERS Safety Report 19478770 (Version 1)
Quarter: 2021Q2

REPORT INFORMATION
  Report Type: Spontaneous
  Country: CA (occurrence: CA)
  Receive Date: 20210630
  Receipt Date: 20210630
  Transmission Date: 20210717
  Serious: Yes (Other)
  Sender: FDA-Public Use
  Company Number: CA-PFIZER INC-2021120961

PATIENT
  Age: 55 Year
  Sex: Female
  Weight: 85.5 kg

DRUGS (7)
  1. PLAQUENIL [Concomitant]
     Active Substance: HYDROXYCHLOROQUINE SULFATE
     Dosage: 200 MG, 2X/DAY
     Dates: start: 202006
  2. LEFLUNOMIDE. [Concomitant]
     Active Substance: LEFLUNOMIDE
     Dosage: 20 MG, DAILY
     Dates: start: 202007
  3. RUXIENCE [Suspect]
     Active Substance: RITUXIMAB-PVVR
     Indication: RHEUMATOID ARTHRITIS
     Dosage: 1000 MG EVERY 2 WEEKS
     Route: 042
     Dates: start: 20210120
  4. TRAMADOL. [Concomitant]
     Active Substance: TRAMADOL
     Dosage: 325 MG, AS NEEDED
  5. VISTITAN [Concomitant]
     Dosage: 1 DF, DAILY TO LEFT EYE
  6. CBD OIL [Concomitant]
     Active Substance: CANNABIDIOL\HERBALS
     Dosage: 10 MG, DAILY AT BEDTIME
  7. RUXIENCE [Suspect]
     Active Substance: RITUXIMAB-PVVR
     Dosage: 1000 MG EVERY 2 WEEKS
     Route: 042
     Dates: start: 20210203

REACTIONS (5)
  - Off label use [Unknown]
  - Thyroid cancer [Unknown]
  - Hypothyroidism [Unknown]
  - Intentional product use issue [Unknown]
  - Off label use [Unknown]

NARRATIVE: CASE EVENT DATE: 20210120
